FAERS Safety Report 8212414-2 (Version None)
Quarter: 2012Q1

REPORT INFORMATION
  Report Type: 
  Country: None (occurrence: None)
  Receive Date: 20120229
  Receipt Date: 20110512
  Transmission Date: 20120608
  Serious: Yes (Hospitalization)
  Sender: FDA-Public Use
  Company Number: PHHY2011US42488

PATIENT
  Age: 8 Year
  Sex: Male

DRUGS (10)
  1. FLOVENT [Concomitant]
  2. TEGRETOL [Suspect]
     Indication: EPILEPSY
     Dosage: 500 MG, BID 1000 MG, BID
  3. MELATONIN (MELATONIN) [Concomitant]
  4. B-KOMPLEX (CALCIUM POANTOTHENATE,NICOTINAMIDE, PYRIDOXINE HYDROCHLORID [Concomitant]
  5. SELENIUM (SELENIUM) [Concomitant]
  6. SABRIL [Suspect]
     Indication: EPILEPSY
     Dosage: 1500 MG QAM, ORAL 1250 MG QPM, ORAL
     Route: 048
  7. AFINITOR [Concomitant]
  8. RISPERDAL [Concomitant]
  9. METFORMIN HCL [Concomitant]
  10. TAURINE (TAURINE) [Concomitant]

REACTIONS (2)
  - ANTICONVULSANT DRUG LEVEL BELOW THERAPEUTIC [None]
  - GRAND MAL CONVULSION [None]
